FAERS Safety Report 18585327 (Version 7)
Quarter: 2025Q4

REPORT INFORMATION
  Report Type: Report from Study
  Country: CA (occurrence: CA)
  Receive Date: 20201207
  Receipt Date: 20251008
  Transmission Date: 20260118
  Serious: Yes (Hospitalization, Other)
  Sender: TAKEDA
  Company Number: CA-TAKEDA-2019TUS053430

PATIENT
  Age: 77 Year
  Sex: Male

DRUGS (4)
  1. VEDOLIZUMAB [Suspect]
     Active Substance: VEDOLIZUMAB
     Indication: Crohn^s disease
     Dosage: 300 MILLIGRAM
  2. VEDOLIZUMAB [Suspect]
     Active Substance: VEDOLIZUMAB
     Dosage: 300 MILLIGRAM, Q4WEEKS
     Dates: start: 20191106
  3. VEDOLIZUMAB [Suspect]
     Active Substance: VEDOLIZUMAB
     Dosage: 300 MILLIGRAM, Q4WEEKS
  4. VEDOLIZUMAB [Suspect]
     Active Substance: VEDOLIZUMAB
     Dosage: 300 MILLIGRAM, Q4WEEKS

REACTIONS (19)
  - Spinal fracture [Unknown]
  - Dementia [Recovered/Resolved with Sequelae]
  - Haemoglobin decreased [Unknown]
  - Hypercalcaemia [Unknown]
  - Confusional state [Unknown]
  - Anaemia [Unknown]
  - Fall [Recovered/Resolved with Sequelae]
  - Asthenia [Not Recovered/Not Resolved]
  - Back pain [Recovered/Resolved with Sequelae]
  - Motor dysfunction [Unknown]
  - Conjunctival haemorrhage [Unknown]
  - Lower respiratory tract infection [Unknown]
  - Lymphoma [Not Recovered/Not Resolved]
  - Pallor [Unknown]
  - Somnolence [Unknown]
  - Malaise [Not Recovered/Not Resolved]
  - Fatigue [Not Recovered/Not Resolved]
  - Cough [Unknown]
  - Rash [Not Recovered/Not Resolved]

NARRATIVE: CASE EVENT DATE: 20190917
